FAERS Safety Report 4822494-X (Version None)
Quarter: 2005Q4

REPORT INFORMATION
  Report Type: 
  Country: None (occurrence: None)
  Receive Date: 20051104
  Receipt Date: 20051028
  Transmission Date: 20060501
  Serious: Yes (Death)
  Sender: FDA-Public Use
  Company Number: 051101-0001078

PATIENT
  Age: 1 Year
  Sex: Male

DRUGS (10)
  1. INDOCIN [Suspect]
     Indication: PATENT DUCTUS ARTERIOSUS
     Dosage: 0.8 MG;QD;IV
     Route: 042
     Dates: start: 20050514, end: 20050515
  2. GLUCOSE [Concomitant]
  3. DOPAMINE HCL [Concomitant]
  4. ALBUMARC [Concomitant]
  5. LASIX [Concomitant]
  6. AMPICILLIN [Concomitant]
  7. GENTACIN [Concomitant]
  8. ZANTAC [Concomitant]
  9. DORMICUM [Concomitant]
  10. MUSCULAX [Concomitant]

REACTIONS (9)
  - BLOOD GLUCOSE INCREASED [None]
  - CARDIAC DISORDER [None]
  - HEPATIC FUNCTION ABNORMAL [None]
  - LUNG DISORDER [None]
  - NEONATAL ANURIA [None]
  - NEONATAL DISORDER [None]
  - NEONATAL MULTI-ORGAN FAILURE [None]
  - PERITONEAL DIALYSIS [None]
  - PULMONARY HAEMORRHAGE [None]
